FAERS Safety Report 15544987 (Version 1)
Quarter: 2018Q4

REPORT INFORMATION
  Report Type: Spontaneous
  Country: IT (occurrence: IT)
  Receive Date: 20181024
  Receipt Date: 20181024
  Transmission Date: 20190205
  Serious: Yes (Other)
  Sender: FDA-Public Use
  Company Number: IT-INGENUS PHARMACEUTICALS NJ, LLC-ING201810-001017

PATIENT
  Age: 65 Year
  Sex: Male

DRUGS (5)
  1. PARACETAMOL [Suspect]
     Active Substance: ACETAMINOPHEN
  2. CARISOPRODOL, ASPIRIN AND CODEINE PHOSPHATE [Suspect]
     Active Substance: ASPIRIN\CARISOPRODOL\CODEINE PHOSPHATE
  3. TRAMADOL. [Concomitant]
     Active Substance: TRAMADOL
  4. DICLOFENAC [Suspect]
     Active Substance: DICLOFENAC
  5. METAMIZOL [Suspect]
     Active Substance: METAMIZOLE SODIUM

REACTIONS (3)
  - Urticaria [Unknown]
  - Drug intolerance [Unknown]
  - Angioedema [Unknown]
